FAERS Safety Report 9742881 (Version 2)
Quarter: 2014Q1

REPORT INFORMATION
  Report Type: Report from Study
  Country: BR (occurrence: BR)
  Receive Date: 20131210
  Receipt Date: 20140213
  Transmission Date: 20141002
  Serious: Yes (Other)
  Sender: FDA-Public Use
  Company Number: PHHY2013BR144306

PATIENT
  Sex: Female
  Weight: 87 kg

DRUGS (16)
  1. DIOVAN HCT [Suspect]
     Indication: HYPERTENSION
     Dosage: 1 DF(160/12.5MG), DAILY
     Route: 048
     Dates: end: 20131003
  2. DIOVAN HCT [Suspect]
     Dosage: 0.5 DF(160/12.5MG), DAILY
     Dates: start: 20131004
  3. AMARYL [Concomitant]
     Indication: DIABETES MELLITUS
     Dosage: 1 DF (2 MG), DAILY
     Route: 048
     Dates: start: 2007
  4. PANTOPRAZOLE [Concomitant]
     Indication: GASTRIC DISORDER
     Dosage: 3 DF (20 MG), DAILY
     Route: 048
     Dates: start: 1993
  5. MOTILIUM//DOMPERIDONE [Concomitant]
     Dosage: 3 DF (10 MG), DAILY
     Route: 048
     Dates: start: 1993
  6. LIPITOR [Concomitant]
     Dosage: 1 DF (20 MG), DAILY
     Route: 048
  7. SOMALGIN [Concomitant]
     Indication: ANTICOAGULANT THERAPY
     Dosage: 1 DF (100 MG), DAILY
     Route: 048
  8. ALLOPURINOL [Concomitant]
     Dosage: 1 DF (300 MG), DAILY
     Route: 048
  9. GLIFAGE [Concomitant]
     Indication: DIABETES MELLITUS
     Dosage: 2 DF (500 MG), DAILY
     Route: 048
  10. FRONTAL [Concomitant]
     Indication: SLEEP DISORDER
     Dosage: 1 DF (0.5 MG), UNK
     Route: 048
  11. CALTRATE D                         /00944201/ [Concomitant]
     Indication: BONE DISORDER
     Dosage: 1 DF (600 MG), DAILY
     Route: 048
  12. STABIL//PRAMIPEXOLE DIHYDROCHLORIDE [Concomitant]
     Indication: VITAMIN E DEFICIENCY
     Dosage: 1 DF (1000 UI), DAILY
     Route: 048
  13. CARDIZEM [Concomitant]
     Indication: HYPERTENSION
     Dosage: 1 DF (90 MG), DAILY
     Route: 048
  14. ZOLOFT [Concomitant]
     Indication: DEPRESSION
     Dosage: 1 DF (50 MG), DAILY
     Route: 048
     Dates: start: 201310
  15. PRIMIDONE [Concomitant]
     Indication: TREMOR
     Dosage: 5 DF (100 MG 2 TABLET IN ORNING, ONE TABLET IN AFTERNOON AND 2 TABLET IN NIGHT), DAILY
     Route: 048
     Dates: start: 201310
  16. SPIRIVA [Concomitant]
     Dosage: 1 DF, UNK
     Route: 055

REACTIONS (2)
  - Renal mass [Recovered/Resolved]
  - Wrong technique in drug usage process [Unknown]
